FAERS Safety Report 8387835-8 (Version None)
Quarter: 2012Q2

REPORT INFORMATION
  Report Type: 
  Country: None (occurrence: None)
  Receive Date: 20120525
  Receipt Date: 20120306
  Transmission Date: 20120825
  Serious: No
  Sender: FDA-Public Use
  Company Number: US-BRISTOL-MYERS SQUIBB COMPANY-16436040

PATIENT
  Age: 74 Year
  Sex: Female

DRUGS (3)
  1. GLIMEPIRIDE [Suspect]
  2. ENALAPRIL MALEATE [Concomitant]
     Indication: BLOOD PRESSURE
  3. KOMBIGLYZE XR [Suspect]
     Indication: TYPE 2 DIABETES MELLITUS
     Dosage: 1DF= 5/500MG

REACTIONS (1)
  - HYPOGLYCAEMIA [None]
